FAERS Safety Report 18487017 (Version 1)
Quarter: 2020Q4

REPORT INFORMATION
  Report Type: Spontaneous
  Country: JP (occurrence: JP)
  Receive Date: 20201110
  Receipt Date: 20201110
  Transmission Date: 20210114
  Serious: Yes (Other)
  Sender: FDA-Public Use
  Company Number: JP-BAYER-2020-234594

PATIENT

DRUGS (1)
  1. CIPROXAN-I.V.400 [Suspect]
     Active Substance: CIPROFLOXACIN

REACTIONS (1)
  - Hypoacusis [None]
